FAERS Safety Report 13737584 (Version 2)
Quarter: 2018Q2

REPORT INFORMATION
  Report Type: Spontaneous
  Country: US (occurrence: US)
  Receive Date: 20170710
  Receipt Date: 20180627
  Transmission Date: 20180711
  Serious: Yes (Hospitalization, Other)
  Sender: FDA-Public Use
  Company Number: US-SAOL THERAPEUTICS-2016SAO01086

PATIENT
  Age: 43 Year
  Sex: Female

DRUGS (6)
  1. BACLOFEN. [Suspect]
     Active Substance: BACLOFEN
     Dosage: 653.3 ?G, \DAY
     Route: 037
     Dates: end: 20161110
  2. BACLOFEN. [Suspect]
     Active Substance: BACLOFEN
     Dosage: 235 ?G, \DAY
     Route: 037
     Dates: start: 20161113, end: 20161114
  3. BACLOFEN. [Suspect]
     Active Substance: BACLOFEN
     Dosage: 754.4 ?G, \DAY-FLEXED
     Route: 037
  4. BACLOFEN. [Suspect]
     Active Substance: BACLOFEN
     Dosage: 376 ?G, \DAY
     Route: 037
     Dates: start: 20161110, end: 20161113
  5. BACLOFEN. [Suspect]
     Active Substance: BACLOFEN
     Dosage: 20 MG, ONCE
     Route: 048
  6. BACLOFEN. [Suspect]
     Active Substance: BACLOFEN
     Dosage: 376 ?G, \DAY
     Route: 037
     Dates: start: 20161114

REACTIONS (6)
  - Depressed level of consciousness [Recovered/Resolved]
  - Tremor [Not Recovered/Not Resolved]
  - Device dislocation [Not Recovered/Not Resolved]
  - Muscle spasticity [Unknown]
  - Device damage [Recovered/Resolved]
  - Therapeutic response decreased [Unknown]

NARRATIVE: CASE EVENT DATE: 2016
